FAERS Safety Report 16521532 (Version 1)
Quarter: 2019Q3

REPORT INFORMATION
  Report Type: Spontaneous
  Country: US (occurrence: US)
  Receive Date: 20190523
  Receipt Date: 20190523
  Transmission Date: 20191004
  Serious: No
  Sender: FDA-Public Use
  Company Number: None

PATIENT
  Age: 64 Year
  Sex: Female

DRUGS (1)
  1. ORENCIA [Suspect]
     Active Substance: ABATACEPT
     Indication: RHEUMATOID ARTHRITIS
     Dosage: ?          OTHER FREQUENCY:OTHER
     Route: 058
     Dates: start: 201811, end: 201904

REACTIONS (3)
  - Drug ineffective [None]
  - Influenza [None]
  - Pneumonia [None]

NARRATIVE: CASE EVENT DATE: 20190420
